FAERS Safety Report 8943352 (Version 1)
Quarter: 2012Q4

REPORT INFORMATION
  Report Type: 
  Country: CA (occurrence: CA)
  Receive Date: 20121204
  Receipt Date: 20121204
  Transmission Date: 20130627
  Serious: Yes (Other)
  Sender: FDA-Public Use
  Company Number: CA-AMGEN-CANSP2012007006

PATIENT
  Age: 63 Year
  Sex: Male

DRUGS (2)
  1. ENBREL [Suspect]
     Indication: RHEUMATOID ARTHRITIS
     Dosage: 50 mg, UNK
     Dates: start: 20110612
  2. MTX                                /00113801/ [Concomitant]
     Dosage: 20 mg, qwk

REACTIONS (3)
  - Osteitis [Recovered/Resolved]
  - Skin ulcer [Recovered/Resolved]
  - Cellulitis [Recovered/Resolved]
